FAERS Safety Report 6436558-0 (Version None)
Quarter: 2009Q4

REPORT INFORMATION
  Report Type: 
  Country: None (occurrence: None)
  Receive Date: 20091111
  Receipt Date: 20091109
  Transmission Date: 20100525
  Serious: Yes (Hospitalization, Other)
  Sender: FDA-Public Use
  Company Number: CA-ALLERGAN-0910449US

PATIENT
  Age: 74 Year
  Sex: Male

DRUGS (1)
  1. BOTOX [Suspect]
     Indication: MUSCLE SPASTICITY
     Dosage: 525 UNITS, SINGLE
     Route: 030
     Dates: start: 20090506, end: 20090506

REACTIONS (7)
  - DIAPHRAGM MUSCLE WEAKNESS [None]
  - DYSPHAGIA [None]
  - EYELID PTOSIS [None]
  - HEMIPARESIS [None]
  - MUSCULAR WEAKNESS [None]
  - PNEUMONIA ASPIRATION [None]
  - SPEECH DISORDER [None]
